FAERS Safety Report 9759034 (Version 1)
Quarter: 2013Q4

REPORT INFORMATION
  Report Type: Spontaneous
  Country: US (occurrence: None)
  Receive Date: 20131216
  Receipt Date: 20131216
  Transmission Date: 20140711
  Serious: Yes (Other)
  Sender: FDA-Public Use
  Company Number: 163-21880-12092204(0)

PATIENT
  Age: 70 Year
  Sex: Male
  Weight: 90 kg

DRUGS (1)
  1. REVLIMID [Suspect]
     Indication: PLASMA CELL MYELOMA
     Dosage: 10 MG, 1 IN 1 D,PO? ? ? ? ?

REACTIONS (6)
  - Gastric disorder [None]
  - Contusion [None]
  - Constipation [None]
  - Pruritus [None]
  - Fatigue [None]
  - Headache [None]
